FAERS Safety Report 6897433-0 (Version None)
Quarter: 2010Q3

REPORT INFORMATION
  Report Type: 
  Country: None (occurrence: None)
  Receive Date: 20100729
  Receipt Date: 20100714
  Transmission Date: 20110219
  Serious: Yes (Other)
  Sender: FDA-Public Use
  Company Number: 2010US-35982

PATIENT
  Age: 69 Year
  Sex: Female

DRUGS (3)
  1. VERAPAMIL [Suspect]
     Indication: CHEST PAIN
     Dosage: 80 MG, TID
  2. METOPROLOL SUCCINATE [Suspect]
     Indication: ANGINA PECTORIS
     Dosage: 50 MG, BID
  3. GLYCERYL TRINITRATE (GLYCERYL TRINITRATE) INFUSION [Concomitant]

REACTIONS (5)
  - BRADYCARDIA [None]
  - CARDIAC FAILURE CONGESTIVE [None]
  - DRUG INTERACTION [None]
  - HYPOTENSION [None]
  - PULMONARY CONGESTION [None]
